FAERS Safety Report 4774223-6 (Version None)
Quarter: 2005Q3

REPORT INFORMATION
  Report Type: 
  Country: None (occurrence: None)
  Receive Date: 20050921
  Receipt Date: 20050601
  Transmission Date: 20060218
  Serious: Yes (Hospitalization)
  Sender: FDA-Public Use
  Company Number: 2005UW08486

PATIENT
  Age: 66 Year
  Sex: Male
  Weight: 115.8 kg

DRUGS (14)
  1. IRESSA [Suspect]
     Indication: COLON CANCER METASTATIC
     Route: 048
     Dates: start: 20050315, end: 20050515
  2. LASIX [Concomitant]
     Indication: DIURETIC THERAPY
     Route: 048
     Dates: start: 20030101
  3. PERCOCET [Concomitant]
     Indication: PAIN
     Route: 048
     Dates: start: 20040101, end: 20050301
  4. COUMADIN [Concomitant]
     Indication: ANTICOAGULANT THERAPY
     Route: 048
     Dates: start: 20020101, end: 20050228
  5. ZESTRIL [Concomitant]
     Indication: HYPERTENSION
     Route: 048
     Dates: start: 20020101
  6. COSOPT [Concomitant]
     Indication: GLAUCOMA
     Dosage: 2%-5%
     Route: 047
     Dates: start: 20020101
  7. ALPHA LIPOIC ACID [Concomitant]
     Indication: NEUROPATHY
     Dosage: 1%
     Route: 048
     Dates: start: 20050101
  8. FOLIC ACID [Concomitant]
     Indication: NEUROPATHY
     Route: 048
     Dates: start: 20010101
  9. LANTUS [Concomitant]
     Indication: DIABETES MELLITUS
     Dates: start: 20010101
  10. NOVOLIN INSULIN [Concomitant]
     Indication: DIABETES MELLITUS
     Route: 058
     Dates: start: 20010101, end: 20050201
  11. LOVENOX [Concomitant]
     Indication: ANTICOAGULANT THERAPY
     Route: 058
     Dates: start: 20050302, end: 20050321
  12. IMODIUM [Concomitant]
     Indication: DIARRHOEA
     Dosage: 2 TABLETS
     Route: 048
  13. FISH OIL [Concomitant]
     Indication: HYPERTENSION
     Route: 048
     Dates: start: 20020101
  14. FISH OIL [Concomitant]
     Indication: HYPERLIPIDAEMIA
     Route: 048
     Dates: start: 20020101

REACTIONS (10)
  - ATRIAL FIBRILLATION [None]
  - CARDIAC FAILURE CONGESTIVE [None]
  - CHEST PAIN [None]
  - DYSPNOEA [None]
  - ELECTROCARDIOGRAM QRS COMPLEX PROLONGED [None]
  - ELECTROCARDIOGRAM ST SEGMENT ABNORMAL [None]
  - HEART RATE IRREGULAR [None]
  - NAUSEA [None]
  - PALPITATIONS [None]
  - VENTRICULAR EXTRASYSTOLES [None]
